FAERS Safety Report 9283603 (Version 2)
Quarter: 2013Q2

REPORT INFORMATION
  Report Type: Spontaneous
  Country: BE (occurrence: None)
  Receive Date: 20130506
  Receipt Date: 20130520
  Transmission Date: 20140414
  Serious: Yes (Other)
  Sender: FDA-Public Use
  Company Number: 2013DEPBE00527

PATIENT
  Age: 6 Year
  Sex: Female

DRUGS (2)
  1. DEPOCYT [Suspect]
     Indication: PRODUCT USED FOR UNKNOWN INDICATION
  2. ANTIBIOTICS (ANTIBIOTICS) [Suspect]
     Indication: INFECTION PROPHYLAXIS

REACTIONS (4)
  - Off label use [None]
  - Infection [None]
  - Headache [None]
  - Pyrexia [None]
